FAERS Safety Report 25259175 (Version 1)
Quarter: 2025Q2

REPORT INFORMATION
  Report Type: Spontaneous
  Country: LK (occurrence: LK)
  Receive Date: 20250501
  Receipt Date: 20250501
  Transmission Date: 20250716
  Serious: Yes (Life-Threatening, Hospitalization)
  Sender: ACCORD
  Company Number: LK-Accord-481489

PATIENT
  Age: 17 Year
  Sex: Male

DRUGS (1)
  1. AMLODIPINE [Suspect]
     Active Substance: AMLODIPINE BESYLATE
     Route: 048

REACTIONS (8)
  - Intentional overdose [Unknown]
  - Respiratory failure [Recovered/Resolved]
  - Heart failure with reduced ejection fraction [Recovered/Resolved]
  - Hypervolaemia [Recovered/Resolved]
  - Respiratory distress [Recovered/Resolved]
  - Mental status changes [Recovered/Resolved]
  - Pleural effusion [Recovered/Resolved]
  - Pulmonary oedema [Recovered/Resolved]
